FAERS Safety Report 9145397 (Version 1)
Quarter: 2013Q1

REPORT INFORMATION
  Report Type: Spontaneous
  Country: CZ (occurrence: CZ)
  Receive Date: 20130307
  Receipt Date: 20130307
  Transmission Date: 20140127
  Serious: Yes (Death, Hospitalization, Other)
  Sender: FDA-Public Use
  Company Number: CZ-JNJFOC-20130216928

PATIENT
  Age: 80 Year
  Sex: Male

DRUGS (5)
  1. XARELTO [Suspect]
     Indication: PRODUCT USED FOR UNKNOWN INDICATION
     Route: 048
     Dates: start: 20130214, end: 20130216
  2. RENPRESS [Concomitant]
     Indication: HYPERTENSION
     Route: 048
  3. LOKREN [Concomitant]
     Indication: HYPERTENSION
     Route: 048
  4. MODURETIC [Concomitant]
     Indication: HYPERTENSION
     Route: 048
  5. DIPIDOLOR [Concomitant]
     Indication: HIP ARTHROPLASTY
     Route: 030

REACTIONS (2)
  - Pulmonary embolism [Fatal]
  - Gastric neoplasm [Fatal]
